FAERS Safety Report 7597259-9 (Version None)
Quarter: 2011Q3

REPORT INFORMATION
  Report Type: 
  Country: None (occurrence: None)
  Receive Date: 20110708
  Receipt Date: 20110112
  Transmission Date: 20111222
  Serious: No
  Sender: FDA-Public Use
  Company Number: US-GLAXOSMITHKLINE-A0905428A

PATIENT
  Sex: Female

DRUGS (2)
  1. FLOVENT [Suspect]
     Indication: ASTHMA
     Dosage: 2PUFF TWICE PER DAY
     Route: 055
     Dates: start: 20100301, end: 20101001
  2. CALCIUM CARBONATE [Concomitant]

REACTIONS (3)
  - THROAT IRRITATION [None]
  - DYSPHONIA [None]
  - INHALATION THERAPY [None]
